FAERS Safety Report 20004934 (Version 1)
Quarter: 2021Q4

REPORT INFORMATION
  Report Type: Other
  Country: SG (occurrence: SG)
  Receive Date: 20211027
  Receipt Date: 20211027
  Transmission Date: 20220303
  Serious: Yes (Death, Other)
  Sender: FDA-Public Use
  Company Number: SG-ROCHE-2939982

PATIENT

DRUGS (5)
  1. ATEZOLIZUMAB [Suspect]
     Active Substance: ATEZOLIZUMAB
     Indication: Non-small cell lung cancer
     Route: 065
  2. PEMBROLIZUMAB [Suspect]
     Active Substance: PEMBROLIZUMAB
     Indication: Non-small cell lung cancer
     Route: 065
  3. DURVALUMAB [Suspect]
     Active Substance: DURVALUMAB
     Indication: Non-small cell lung cancer
     Route: 065
  4. NIVOLUMAB [Suspect]
     Active Substance: NIVOLUMAB
     Indication: Non-small cell lung cancer
     Route: 065
  5. AVELUMAB [Suspect]
     Active Substance: AVELUMAB
     Indication: Non-small cell lung cancer
     Route: 065

REACTIONS (41)
  - Pneumonitis [Fatal]
  - Toxic epidermal necrolysis [Unknown]
  - Adrenal insufficiency [Unknown]
  - Transaminases increased [Unknown]
  - Cytokine release syndrome [Unknown]
  - Peripheral motor neuropathy [Unknown]
  - Myopathy [Unknown]
  - Fatigue [Unknown]
  - Cardiomyopathy [Unknown]
  - Pericarditis [Unknown]
  - Dry skin [Unknown]
  - Pruritus [Unknown]
  - Rash [Unknown]
  - Vitiligo [Unknown]
  - Arthralgia [Unknown]
  - Myalgia [Unknown]
  - Joint stiffness [Unknown]
  - Arthritis reactive [Unknown]
  - Myositis [Unknown]
  - Spondylitis [Unknown]
  - Nausea [Unknown]
  - Diarrhoea [Unknown]
  - Dry mouth [Unknown]
  - Constipation [Unknown]
  - Hyperthyroidism [Unknown]
  - Hypothyroidism [Unknown]
  - Thyroiditis [Unknown]
  - Lipase increased [Unknown]
  - Infusion related reaction [Unknown]
  - Neurotoxicity [Unknown]
  - Haematuria [Unknown]
  - Decreased appetite [Unknown]
  - Oedema peripheral [Unknown]
  - Hypoalbuminaemia [Unknown]
  - Rhinitis [Unknown]
  - Lichenification [Unknown]
  - Hypotension [Unknown]
  - Thrombocytopenia [Unknown]
  - Pyrexia [Unknown]
  - Pain [Unknown]
  - Paronychia [Unknown]
